FAERS Safety Report 6293527-1 (Version None)
Quarter: 2009Q3

REPORT INFORMATION
  Report Type: 
  Country: None (occurrence: None)
  Receive Date: 20090729
  Receipt Date: 20090715
  Transmission Date: 20100115
  Serious: Yes (Life-Threatening, Hospitalization)
  Sender: FDA-Public Use
  Company Number: 8049087

PATIENT
  Age: 52 Year
  Sex: Female
  Weight: 54 kg

DRUGS (8)
  1. CERTOLIZUMAB PEGOL [Suspect]
     Indication: RHEUMATOID ARTHRITIS
     Dosage: 200 MG 1/2W SC
     Route: 058
     Dates: start: 20060118, end: 20060706
  2. CERTOLIZUMAB PEGOL [Suspect]
     Indication: RHEUMATOID ARTHRITIS
     Dosage: 200 MG 1/2W SC
     Route: 058
     Dates: start: 20060706, end: 20090716
  3. METHOTREXATE [Concomitant]
  4. ENCORTON [Concomitant]
  5. AMLOZEK  /00972401/ [Concomitant]
  6. TERTENSIF [Concomitant]
  7. FOLIC ACID [Concomitant]
  8. POLPRAZOL [Concomitant]

REACTIONS (3)
  - DEHYDRATION [None]
  - ENTEROCOLITIS [None]
  - PNEUMOCOCCAL SEPSIS [None]
